FAERS Safety Report 6166634-1 (Version None)
Quarter: 2009Q2

REPORT INFORMATION
  Report Type: 
  Country: None (occurrence: None)
  Receive Date: 20090422
  Receipt Date: 20090408
  Transmission Date: 20091009
  Serious: Yes (Hospitalization)
  Sender: FDA-Public Use
  Company Number: 230096K09AUS

PATIENT
  Age: 32 Year
  Sex: Female

DRUGS (2)
  1. REBIF [Suspect]
     Indication: MULTIPLE SCLEROSIS
     Dosage: 0.5 ML, 3 IN 1 WEEKS, SUBCUTANEOUS;  3 IN 1 WEEKS, SUBCUTANEOUS
     Route: 058
     Dates: start: 20090216
  2. REBIF [Suspect]
     Indication: MULTIPLE SCLEROSIS
     Dosage: 0.5 ML, 3 IN 1 WEEKS, SUBCUTANEOUS;  3 IN 1 WEEKS, SUBCUTANEOUS
     Route: 058
     Dates: start: 20090324

REACTIONS (3)
  - INJECTION SITE ERYTHEMA [None]
  - INJECTION SITE RASH [None]
  - LOSS OF CONSCIOUSNESS [None]
